FAERS Safety Report 8286412-7 (Version None)
Quarter: 2012Q2

REPORT INFORMATION
  Report Type: 
  Country: None (occurrence: None)
  Receive Date: 20120411
  Receipt Date: 20120411
  Transmission Date: 20120825
  Serious: No
  Sender: FDA-Public Use
  Company Number: None

PATIENT
  Age: 65 Year
  Sex: Female
  Weight: 125.6464 kg

DRUGS (2)
  1. BRILINTA [Suspect]
     Indication: CARDIAC OPERATION
     Dates: start: 20120301, end: 20120304
  2. BRILINTA [Suspect]
     Indication: STENT PLACEMENT
     Dates: start: 20120301, end: 20120304

REACTIONS (4)
  - ERYTHEMA [None]
  - RASH MACULAR [None]
  - PRURITUS [None]
  - VASCULAR RUPTURE [None]
